FAERS Safety Report 5418685-X (Version None)
Quarter: 2007Q3

REPORT INFORMATION
  Report Type: 
  Country: None (occurrence: None)
  Receive Date: 20070817
  Receipt Date: 20070806
  Transmission Date: 20080115
  Serious: Yes (Other)
  Sender: FDA-Public Use
  Company Number: US-PFIZER INC-2007017824

PATIENT
  Sex: Female
  Weight: 163 kg

DRUGS (4)
  1. GEODON [Suspect]
     Indication: BIPOLAR DISORDER
  2. DEPO-PROVERA [Suspect]
     Indication: CONTRACEPTION
     Dates: start: 20070301, end: 20070301
  3. LEXAPRO [Concomitant]
  4. TRILEPTAL [Concomitant]

REACTIONS (13)
  - ADVERSE DRUG REACTION [None]
  - AGGRESSION [None]
  - AGITATION [None]
  - AMENORRHOEA [None]
  - DEPRESSION [None]
  - FATIGUE [None]
  - HEAT EXPOSURE INJURY [None]
  - HYPOMENORRHOEA [None]
  - INCONTINENCE [None]
  - METRORRHAGIA [None]
  - MUSCLE SPASMS [None]
  - MYOPIA [None]
  - URINARY INCONTINENCE [None]
